FAERS Safety Report 6276331-X (Version None)
Quarter: 2009Q3

REPORT INFORMATION
  Report Type: 
  Country: None (occurrence: None)
  Receive Date: 20090722
  Receipt Date: 20090713
  Transmission Date: 20100115
  Serious: Yes (Hospitalization, Other)
  Sender: FDA-Public Use
  Company Number: DE-JNJFOC-20090608763

PATIENT
  Age: 58 Year
  Sex: Female

DRUGS (2)
  1. RISPERDAL [Suspect]
     Indication: SCHIZOAFFECTIVE DISORDER
     Route: 048
  2. ZUCLOPENTHIXOL [Concomitant]
     Route: 048

REACTIONS (2)
  - BREAST CANCER [None]
  - GALACTORRHOEA [None]
